FAERS Safety Report 18242207 (Version 1)
Quarter: 2020Q3

REPORT INFORMATION
  Report Type: Spontaneous
  Country: ES (occurrence: ES)
  Receive Date: 20200908
  Receipt Date: 20200908
  Transmission Date: 20201103
  Serious: Yes (Hospitalization, Other)
  Sender: FDA-Public Use
  Company Number: ES-GILEAD-2020-0493632

PATIENT
  Age: 87 Year
  Sex: Male
  Weight: 100 kg

DRUGS (12)
  1. SEPTRIN [Concomitant]
     Active Substance: SULFAMETHOXAZOLE\TRIMETHOPRIM
  2. TRIMBOW [Concomitant]
     Active Substance: BECLOMETHASONE DIPROPIONATE\FORMOTEROL FUMARATE\GLYCOPYRROLATE
  3. SALBUTAMOL SANDOZ [SALBUTAMOL] [Concomitant]
  4. OMEPRAZOL GOBENS [Concomitant]
  5. FUROSEMIDA COMBIX [Concomitant]
  6. SINTROM [Concomitant]
     Active Substance: ACENOCOUMAROL
  7. VALACICLOVIR TEVA [Concomitant]
     Active Substance: VALACYCLOVIR HYDROCHLORIDE
  8. LEDERFOLIN [Concomitant]
     Active Substance: LEUCOVORIN CALCIUM
  9. ZYDELIG [Suspect]
     Active Substance: IDELALISIB
     Indication: B-CELL LYMPHOMA
     Dosage: 200 MG, QD, 6TH CYCLE
     Route: 048
     Dates: start: 20200704, end: 20200729
  10. ACTIKERALL [Concomitant]
  11. AMLODIPINO NORMON [Concomitant]
     Active Substance: AMLODIPINE BESYLATE
  12. EPLERENONA NORMON [Concomitant]

REACTIONS (1)
  - Toxic skin eruption [Recovered/Resolved]

NARRATIVE: CASE EVENT DATE: 20200729
